FAERS Safety Report 8845073 (Version 1)
Quarter: 2012Q4

REPORT INFORMATION
  Report Type: 
  Country: IT (occurrence: IT)
  Receive Date: 20121017
  Receipt Date: 20121017
  Transmission Date: 20130627
  Serious: Yes (Hospitalization)
  Sender: FDA-Public Use
  Company Number: IT-BRISTOL-MYERS SQUIBB COMPANY-17026170

PATIENT
  Age: 74 Year
  Sex: Male

DRUGS (7)
  1. COUMADIN TABS 5 MG [Suspect]
     Route: 048
     Dates: start: 19910101, end: 20120924
  2. NORVASC [Concomitant]
     Dosage: Tabs
  3. SILDENAFIL [Concomitant]
     Dosage: Tabs
     Route: 048
  4. LOSAPREX [Concomitant]
     Dosage: Tabs
     Route: 048
  5. SELOKEN [Concomitant]
     Dosage: Tabs
     Route: 048
  6. LANOXIN [Concomitant]
     Dosage: Tabs
     Route: 048
  7. CRESTOR [Concomitant]
     Dosage: Tabs
     Route: 048

REACTIONS (4)
  - Malaise [Recovering/Resolving]
  - Melaena [Recovering/Resolving]
  - Gastroduodenal ulcer [Recovering/Resolving]
  - Anaemia [Recovering/Resolving]
